FAERS Safety Report 21231479 (Version 2)
Quarter: 2022Q4

REPORT INFORMATION
  Report Type: Spontaneous
  Country: US (occurrence: US)
  Receive Date: 20220819
  Receipt Date: 20221118
  Transmission Date: 20230113
  Serious: No
  Sender: FDA-Public Use
  Company Number: US-JNJFOC-20220835805

PATIENT

DRUGS (1)
  1. INFLIXIMAB\RECOMBINANT INTERLEUKIN-2 HUMAN [Suspect]
     Active Substance: ALDESLEUKIN\INFLIXIMAB
     Indication: Product used for unknown indication
     Route: 041

REACTIONS (2)
  - Product container issue [Unknown]
  - Wrong technique in product usage process [Unknown]
